FAERS Safety Report 13624377 (Version 2)
Quarter: 2017Q2

REPORT INFORMATION
  Report Type: Not Available
  Country: ES (occurrence: ES)
  Receive Date: 20170607
  Receipt Date: 20170607
  Transmission Date: 20170830
  Serious: Yes (Hospitalization)
  Sender: FDA-Public Use
  Company Number: ES-ANIPHARMA-2017-ES-000022

PATIENT
  Age: 42 Year
  Sex: Male

DRUGS (2)
  1. ALPRAZOLAM (NON-SPECIFIC) [Suspect]
     Active Substance: ALPRAZOLAM
  2. METHADONE [Suspect]
     Active Substance: METHADONE HYDROCHLORIDE

REACTIONS (8)
  - Disturbance in attention [Unknown]
  - Amnestic disorder [Unknown]
  - Leukoencephalopathy [Unknown]
  - Overdose [Unknown]
  - Respiratory depression [Unknown]
  - Myoclonus [Unknown]
  - Depressed level of consciousness [Unknown]
  - Pyrexia [Unknown]
